FAERS Safety Report 7972632-5 (Version None)
Quarter: 2011Q4

REPORT INFORMATION
  Report Type: 
  Country: None (occurrence: None)
  Receive Date: 20111213
  Receipt Date: 20111205
  Transmission Date: 20120403
  Serious: Yes (Other)
  Sender: FDA-Public Use
  Company Number: AU-JNJFOC-20110808102

PATIENT
  Sex: Male

DRUGS (1)
  1. STELARA [Suspect]
     Indication: PSORIASIS
     Route: 058
     Dates: start: 20110726

REACTIONS (4)
  - SEBORRHOEIC KERATOSIS [None]
  - SKIN LESION [None]
  - DIZZINESS [None]
  - PSORIASIS [None]
